FAERS Safety Report 9787275 (Version 1)
Quarter: 2013Q4

REPORT INFORMATION
  Report Type: Report from Study
  Country: US (occurrence: US)
  Receive Date: 20131230
  Receipt Date: 20131230
  Transmission Date: 20140711
  Serious: Yes (Death, Other)
  Sender: FDA-Public Use
  Company Number: US-ROCHE-1320585

PATIENT
  Age: 50 Year
  Sex: Female
  Weight: 63.56 kg

DRUGS (14)
  1. AVASTIN [Suspect]
     Indication: MALIGNANT MELANOMA
     Route: 065
     Dates: start: 20120314
  2. AVASTIN [Suspect]
     Route: 065
     Dates: start: 20120413
  3. AVASTIN [Suspect]
     Route: 065
     Dates: start: 20120504
  4. ZELBORAF [Suspect]
     Indication: MALIGNANT MELANOMA
     Route: 065
  5. ZOFRAN [Concomitant]
     Route: 042
  6. DECADRON [Concomitant]
     Route: 042
     Dates: start: 20120314
  7. EMEND [Concomitant]
     Route: 048
     Dates: start: 20120504
  8. ABRAXANE [Concomitant]
     Route: 065
     Dates: start: 20120314
  9. ABRAXANE [Concomitant]
     Route: 065
     Dates: start: 20120413
  10. ABRAXANE [Concomitant]
     Route: 065
     Dates: start: 20120504
  11. CARBOPLATIN [Concomitant]
     Route: 065
     Dates: start: 20120314
  12. CARBOPLATIN [Concomitant]
     Route: 065
     Dates: start: 20120413
  13. CARBOPLATIN [Concomitant]
     Route: 065
     Dates: start: 20120504
  14. KYTRIL [Concomitant]
     Route: 042
     Dates: start: 20120314

REACTIONS (14)
  - Disease progression [Fatal]
  - Visual impairment [Unknown]
  - Fatigue [Unknown]
  - Pain [Unknown]
  - Oedema [Unknown]
  - Oedema peripheral [Unknown]
  - Neuropathy peripheral [Unknown]
  - Contusion [Unknown]
  - Peroneal nerve palsy [Unknown]
  - Gait disturbance [Unknown]
  - Vomiting [Unknown]
  - Flushing [Unknown]
  - Local swelling [Unknown]
  - White blood cell count decreased [Unknown]
